FAERS Safety Report 21716965 (Version 1)
Quarter: 2022Q4

REPORT INFORMATION
  Report Type: Report from Study
  Country: US (occurrence: US)
  Receive Date: 20221212
  Receipt Date: 20221212
  Transmission Date: 20230113
  Serious: No
  Sender: FDA-Public Use
  Company Number: US-SUNOVION-2022SUN003393AA

PATIENT
  Age: 55 Year
  Sex: Male

DRUGS (1)
  1. KYNMOBI [Suspect]
     Active Substance: APOMORPHINE HYDROCHLORIDE
     Dosage: 10 MG
     Route: 060
     Dates: start: 20221208

REACTIONS (4)
  - Feeling of relaxation [Unknown]
  - Cold sweat [Unknown]
  - Yawning [Unknown]
  - Nausea [Unknown]

NARRATIVE: CASE EVENT DATE: 20221208
